FAERS Safety Report 7966337-4 (Version None)
Quarter: 2011Q4

REPORT INFORMATION
  Report Type: 
  Country: None (occurrence: None)
  Receive Date: 20111208
  Receipt Date: 20111205
  Transmission Date: 20120403
  Serious: Yes (Other)
  Sender: FDA-Public Use
  Company Number: PE-PFIZER INC-2011286979

PATIENT
  Age: 13 Year
  Sex: Male

DRUGS (1)
  1. GENOTROPIN [Suspect]
     Indication: GROWTH HORMONE DEFICIENCY
     Dosage: 7.2 IU, 1X/DAY
     Route: 058
     Dates: start: 20111115, end: 20111116

REACTIONS (5)
  - BLOOD IMMUNOGLOBULIN E INCREASED [None]
  - ABDOMINAL PAIN UPPER [None]
  - RASH [None]
  - EYE INFLAMMATION [None]
  - VOMITING [None]
